FAERS Safety Report 15654072 (Version 1)
Quarter: 2018Q4

REPORT INFORMATION
  Report Type: Spontaneous
  Country: US (occurrence: US)
  Receive Date: 20181115
  Receipt Date: 20181115
  Transmission Date: 20190205
  Serious: No
  Sender: FDA-Public Use
  Company Number: None

PATIENT
  Age: 60 Year
  Sex: Female

DRUGS (1)
  1. PROLIA [Suspect]
     Active Substance: DENOSUMAB
     Indication: SENILE OSTEOPOROSIS
     Dosage: OTHER
     Route: 058
     Dates: start: 201708, end: 201809

REACTIONS (2)
  - Bone density decreased [None]
  - Drug ineffective [None]

NARRATIVE: CASE EVENT DATE: 20181114
